FAERS Safety Report 18807349 (Version 1)
Quarter: 2021Q1

REPORT INFORMATION
  Report Type: Spontaneous
  Country: US (occurrence: US)
  Receive Date: 20210128
  Receipt Date: 20210128
  Transmission Date: 20210419
  Serious: No
  Sender: FDA-Public Use
  Company Number: US-JNJFOC-20210129285

PATIENT
  Age: 33 Year
  Sex: Female

DRUGS (26)
  1. PEPCID [Suspect]
     Active Substance: FAMOTIDINE
     Indication: SWOLLEN TONGUE
  2. SOLU?MEDROL [Concomitant]
     Active Substance: METHYLPREDNISOLONE SODIUM SUCCINATE
     Indication: DYSGEUSIA
  3. SOLU?MEDROL [Concomitant]
     Active Substance: METHYLPREDNISOLONE SODIUM SUCCINATE
     Indication: SWOLLEN TONGUE
  4. BENADRYL [Suspect]
     Active Substance: DIPHENHYDRAMINE HYDROCHLORIDE
     Indication: DYSPNOEA
  5. PEPCID [Suspect]
     Active Substance: FAMOTIDINE
     Indication: DYSGEUSIA
  6. EPINEPHRINE. [Concomitant]
     Active Substance: EPINEPHRINE
     Indication: URTICARIA
  7. BENADRYL [Suspect]
     Active Substance: DIPHENHYDRAMINE HYDROCHLORIDE
     Indication: SWOLLEN TONGUE
  8. PEPCID [Suspect]
     Active Substance: FAMOTIDINE
     Indication: VACCINATION COMPLICATION
     Route: 065
  9. SOLU?MEDROL [Concomitant]
     Active Substance: METHYLPREDNISOLONE SODIUM SUCCINATE
     Indication: TACHYCARDIA
  10. EPINEPHRINE. [Concomitant]
     Active Substance: EPINEPHRINE
     Indication: SWOLLEN TONGUE
  11. BENADRYL [Suspect]
     Active Substance: DIPHENHYDRAMINE HYDROCHLORIDE
     Indication: VACCINATION COMPLICATION
     Route: 065
  12. PEPCID [Suspect]
     Active Substance: FAMOTIDINE
     Indication: TACHYCARDIA
  13. SOLU?MEDROL [Concomitant]
     Active Substance: METHYLPREDNISOLONE SODIUM SUCCINATE
     Indication: VACCINATION COMPLICATION
     Route: 065
  14. BENADRYL [Suspect]
     Active Substance: DIPHENHYDRAMINE HYDROCHLORIDE
     Indication: DYSGEUSIA
  15. BENADRYL [Suspect]
     Active Substance: DIPHENHYDRAMINE HYDROCHLORIDE
     Indication: URTICARIA
  16. ADDERALL [Concomitant]
     Active Substance: AMPHETAMINE ASPARTATE\AMPHETAMINE SULFATE\DEXTROAMPHETAMINE SACCHARATE\DEXTROAMPHETAMINE SULFATE
     Indication: PRODUCT USED FOR UNKNOWN INDICATION
     Route: 065
  17. SOLU?MEDROL [Concomitant]
     Active Substance: METHYLPREDNISOLONE SODIUM SUCCINATE
     Indication: URTICARIA
  18. EPINEPHRINE. [Concomitant]
     Active Substance: EPINEPHRINE
     Indication: DYSGEUSIA
  19. GABAPENTIN. [Concomitant]
     Active Substance: GABAPENTIN
     Indication: PRODUCT USED FOR UNKNOWN INDICATION
     Route: 065
  20. PEPCID [Suspect]
     Active Substance: FAMOTIDINE
     Indication: URTICARIA
  21. PEPCID [Suspect]
     Active Substance: FAMOTIDINE
     Indication: DYSPNOEA
  22. BENADRYL [Suspect]
     Active Substance: DIPHENHYDRAMINE HYDROCHLORIDE
     Indication: TACHYCARDIA
  23. COVID?19 VACCINE NOS. [Concomitant]
     Active Substance: COVID-19 VACCINE NOS
     Indication: COVID-19 IMMUNISATION
     Dosage: 1ST DOSE; ARM RIGHT
     Route: 065
     Dates: start: 20210107
  24. SOLU?MEDROL [Concomitant]
     Active Substance: METHYLPREDNISOLONE SODIUM SUCCINATE
     Indication: DYSPNOEA
  25. EPINEPHRINE. [Concomitant]
     Active Substance: EPINEPHRINE
     Indication: VACCINATION COMPLICATION
     Route: 065
  26. VENLAFAXINE [Concomitant]
     Active Substance: VENLAFAXINE HYDROCHLORIDE
     Indication: PRODUCT USED FOR UNKNOWN INDICATION
     Route: 065

REACTIONS (2)
  - Off label use [Unknown]
  - Product use in unapproved indication [Unknown]
